FAERS Safety Report 7558471-8 (Version None)
Quarter: 2011Q2

REPORT INFORMATION
  Report Type: 
  Country: None (occurrence: None)
  Receive Date: 20110620
  Receipt Date: 20110617
  Transmission Date: 20111010
  Serious: No
  Sender: FDA-Public Use
  Company Number: US-TEVA-280197USA

PATIENT
  Age: 54 Year
  Sex: Female
  Weight: 78.088 kg

DRUGS (22)
  1. FENTANYL-100 [Suspect]
     Indication: ARTHRALGIA
     Dates: start: 20110401
  2. NAPROXEN [Suspect]
     Indication: ARTHRALGIA
     Dates: start: 20090101
  3. NAPROXEN [Suspect]
     Indication: MUSCULOSKELETAL PAIN
  4. CALCIUM CARBONATE [Suspect]
     Indication: VITAMIN SUPPLEMENTATION
  5. FENTANYL-100 [Suspect]
     Indication: BACK PAIN
  6. CARISOPRODOL [Suspect]
     Indication: MUSCLE RELAXANT THERAPY
     Dates: start: 20100101
  7. SERTRALINE [Suspect]
     Indication: DEPRESSION
     Dates: start: 19950101
  8. ALBUTEROL SULATE [Suspect]
     Indication: ASTHMA
     Dates: end: 20110416
  9. NAPROXEN [Suspect]
     Indication: PAIN IN EXTREMITY
  10. ONE-A-DAY                          /00156401/ [Suspect]
     Indication: VITAMIN SUPPLEMENTATION
  11. TYLOX [Suspect]
     Indication: ARTHRALGIA
  12. TYLOX [Suspect]
     Indication: PAIN IN EXTREMITY
  13. FENTANYL-100 [Suspect]
     Indication: PAIN IN EXTREMITY
  14. NAPROXEN [Suspect]
     Indication: BACK PAIN
  15. TYLOX [Suspect]
     Indication: MUSCULOSKELETAL PAIN
  16. FENTANYL-100 [Suspect]
     Indication: MUSCULOSKELETAL PAIN
  17. PROAIR HFA [Suspect]
     Indication: ASTHMA
     Dosage: 2 PUFFS
  18. TYLOX [Suspect]
     Indication: BACK PAIN
  19. ESOMEPRAZOLE MAGNESIUM [Suspect]
     Indication: ABDOMINAL DISCOMFORT
     Dates: start: 20100101
  20. DIAZEPAM [Suspect]
     Indication: ANXIETY
     Dates: start: 20100101
  21. IPRATROPIUM BROMIDE [Suspect]
     Indication: ASTHMA
     Dates: end: 20110416
  22. ESTRADIOL [Concomitant]

REACTIONS (4)
  - OROPHARYNGEAL PAIN [None]
  - HYPERHIDROSIS [None]
  - PYREXIA [None]
  - ABDOMINAL DISCOMFORT [None]
